FAERS Safety Report 6769582-9 (Version None)
Quarter: 2010Q2

REPORT INFORMATION
  Report Type: 
  Country: None (occurrence: None)
  Receive Date: 20100610
  Receipt Date: 20100603
  Transmission Date: 20101027
  Serious: Yes (Life-Threatening, Hospitalization)
  Sender: FDA-Public Use
  Company Number: WAES 0907USA00898

PATIENT
  Age: 34 Year
  Sex: Female
  Weight: 34.0198 kg

DRUGS (8)
  1. ISENTRESS [Suspect]
     Indication: HIV INFECTION
     Dosage: 400 MG/BID/PO
     Route: 048
     Dates: start: 20090621, end: 20090707
  2. TRUVADA [Suspect]
     Indication: HIV INFECTION
     Dosage: 1 TAB/DAILY/PO
     Route: 048
     Dates: start: 20090621, end: 20090707
  3. BACTRIM DS [Concomitant]
  4. BRICAREX [Concomitant]
  5. LEVODAY [Concomitant]
  6. TONOFERON [Concomitant]
  7. VITANEURIN (FURSULTIAMINE) [Concomitant]
  8. ZEVIT CAPSULES [Concomitant]

REACTIONS (8)
  - BRONCHITIS [None]
  - DIARRHOEA [None]
  - HYPOXIA [None]
  - NORMOCHROMIC NORMOCYTIC ANAEMIA [None]
  - PLEURAL EFFUSION [None]
  - PYREXIA [None]
  - TUBERCULOSIS [None]
  - VOMITING [None]
